FAERS Safety Report 13869946 (Version 3)
Quarter: 2018Q1

REPORT INFORMATION
  Report Type: Report from Study
  Country: ZA (occurrence: ZA)
  Receive Date: 20170815
  Receipt Date: 20180215
  Transmission Date: 20180508
  Serious: Yes (Other)
  Sender: FDA-Public Use
  Company Number: PHHY2017ZA119449

PATIENT
  Age: 32 Year
  Sex: Male

DRUGS (1)
  1. GILENYA [Suspect]
     Active Substance: FINGOLIMOD HYDROCHLORIDE
     Indication: RELAPSING-REMITTING MULTIPLE SCLEROSIS
     Dosage: 0.5 MG, QD
     Route: 048
     Dates: start: 20170808, end: 201802

REACTIONS (5)
  - Vascular rupture [Unknown]
  - Nausea [Unknown]
  - Electrocardiogram T wave inversion [Unknown]
  - Diabetes mellitus [Unknown]
  - Electrocardiogram repolarisation abnormality [Unknown]

NARRATIVE: CASE EVENT DATE: 20170808
